FAERS Safety Report 16397321 (Version 1)
Quarter: 2019Q2

REPORT INFORMATION
  Report Type: Spontaneous
  Country: FR (occurrence: FR)
  Receive Date: 20190606
  Receipt Date: 20190606
  Transmission Date: 20190711
  Serious: Yes (Hospitalization, Other)
  Sender: FDA-Public Use
  Company Number: FR-AUROBINDO-AUR-APL-2019-031300

PATIENT

DRUGS (1)
  1. OXYCODONE [Suspect]
     Active Substance: OXYCODONE
     Indication: PRODUCT USED FOR UNKNOWN INDICATION
     Dosage: UNK, (LP 20 MGX2/J -LI 5MGX3/J)
     Route: 048
     Dates: start: 2009

REACTIONS (1)
  - Drug use disorder [Not Recovered/Not Resolved]

NARRATIVE: CASE EVENT DATE: 2009
